FAERS Safety Report 8264757-4 (Version None)
Quarter: 2012Q2

REPORT INFORMATION
  Report Type: 
  Country: None (occurrence: None)
  Receive Date: 20120406
  Receipt Date: 20120328
  Transmission Date: 20120825
  Serious: Yes (Other)
  Sender: FDA-Public Use
  Company Number: CA-JNJFOC-20120314518

PATIENT
  Sex: Female
  Weight: 57.3 kg

DRUGS (9)
  1. OXYBUTYNIN [Concomitant]
  2. NITROGLYCERIN [Concomitant]
  3. REMICADE [Suspect]
     Indication: CROHN'S DISEASE
     Route: 042
     Dates: start: 20091026
  4. IMURAN [Concomitant]
  5. DILTIAZEM HCL [Concomitant]
  6. METFORMIN HCL [Concomitant]
  7. NEXIUM [Concomitant]
  8. HYDROCHLOROTHIAZIDE [Concomitant]
  9. RAMIPRIL [Concomitant]

REACTIONS (3)
  - GASTROENTERITIS VIRAL [None]
  - DIARRHOEA [None]
  - EYE INFLAMMATION [None]
